FAERS Safety Report 25799359 (Version 1)
Quarter: 2025Q3

REPORT INFORMATION
  Report Type: Spontaneous
  Country: CN (occurrence: CN)
  Receive Date: 20250913
  Receipt Date: 20250913
  Transmission Date: 20251020
  Serious: Yes (Other)
  Sender: ALEXION PHARMACEUTICALS
  Company Number: CN-ASTRAZENECA-202509CHN009666CN

PATIENT
  Age: 55 Year
  Sex: Female
  Weight: 60 kg

DRUGS (1)
  1. OLAPARIB [Suspect]
     Active Substance: OLAPARIB
     Indication: Neoplasm malignant
     Dosage: 300 MILLIGRAM, BID
     Dates: start: 20250620, end: 20250828

REACTIONS (2)
  - Myelosuppression [Recovering/Resolving]
  - Anaemia [Recovering/Resolving]

NARRATIVE: CASE EVENT DATE: 20250828
